FAERS Safety Report 15130065 (Version 1)
Quarter: 2018Q3

REPORT INFORMATION
  Report Type: Spontaneous
  Country: US (occurrence: US)
  Receive Date: 20180615
  Receipt Date: 20180615
  Transmission Date: 20181010
  Serious: Yes (Other)
  Sender: FDA-Public Use
  Company Number: None

PATIENT
  Age: 65 Year
  Sex: Female
  Weight: 75.75 kg

DRUGS (8)
  1. RECLAST [Suspect]
     Active Substance: ZOLEDRONIC ACID
     Indication: OSTEOPOROSIS
     Route: 042
     Dates: start: 20180529
  2. ASA [Concomitant]
     Active Substance: ASPIRIN
  3. ANASTROZOLE. [Concomitant]
     Active Substance: ANASTROZOLE
  4. LISINOPRIL. [Concomitant]
     Active Substance: LISINOPRIL
  5. TOVIAZ [Concomitant]
     Active Substance: FESOTERODINE FUMARATE
  6. NEXIUM [Concomitant]
     Active Substance: ESOMEPRAZOLE MAGNESIUM
  7. ZYRTEC [Concomitant]
     Active Substance: CETIRIZINE HYDROCHLORIDE
  8. VALTREX [Concomitant]
     Active Substance: VALACYCLOVIR HYDROCHLORIDE

REACTIONS (6)
  - Lethargy [None]
  - Pyrexia [None]
  - Chills [None]
  - Back pain [None]
  - Decreased appetite [None]
  - Abdominal pain lower [None]

NARRATIVE: CASE EVENT DATE: 20180529
